FAERS Safety Report 5833220-X (Version None)
Quarter: 2008Q3

REPORT INFORMATION
  Report Type: 
  Country: None (occurrence: None)
  Receive Date: 20080805
  Receipt Date: 20080801
  Transmission Date: 20090109
  Serious: Yes (Hospitalization, Other)
  Sender: FDA-Public Use
  Company Number: US-BRISTOL-MYERS SQUIBB COMPANY-14278931

PATIENT
  Age: 78 Year
  Sex: Male
  Weight: 61 kg

DRUGS (12)
  1. PARACETAMOL [Suspect]
     Dosage: PARACETAMOL 500MG IMMEDIATE RELEASE TABLETS.
  2. ACETYLCYSTEINE [Suspect]
     Route: 042
  3. FUROSEMIDE [Concomitant]
  4. GABAPENTIN [Concomitant]
     Indication: PAIN
  5. METOPROLOL [Concomitant]
  6. SERTRALINE [Concomitant]
  7. MULTI-VITAMINS [Concomitant]
  8. LORAZEPAM [Concomitant]
  9. ALBUTEROL [Concomitant]
     Route: 055
  10. HEPARIN [Concomitant]
     Route: 058
  11. HEPARIN [Concomitant]
     Dosage: 1 DF = 5000 UNITS
     Route: 058
  12. SIMVASTATIN [Concomitant]

REACTIONS (4)
  - HEPATOTOXICITY [None]
  - INTENTIONAL OVERDOSE [None]
  - RENAL IMPAIRMENT [None]
  - SUICIDE ATTEMPT [None]
